FAERS Safety Report 8284440-9 (Version None)
Quarter: 2012Q2

REPORT INFORMATION
  Report Type: 
  Country: None (occurrence: None)
  Receive Date: 20120413
  Receipt Date: 20110526
  Transmission Date: 20120825
  Serious: No
  Sender: FDA-Public Use
  Company Number: US-ASTRAZENECA-2011SE33313

PATIENT
  Age: 48 Year
  Sex: Male

DRUGS (5)
  1. PROTONIX [Concomitant]
  2. PREVACID [Concomitant]
  3. ZANTAC [Concomitant]
  4. NEXIUM [Suspect]
     Route: 048
     Dates: start: 20070101
  5. PRILOSEC [Suspect]
     Indication: GASTROOESOPHAGEAL REFLUX DISEASE
     Route: 048

REACTIONS (5)
  - PHARYNGEAL EROSION [None]
  - THROAT IRRITATION [None]
  - DRY THROAT [None]
  - GASTRITIS [None]
  - DRUG INEFFECTIVE [None]
